FAERS Safety Report 11891227 (Version 15)
Quarter: 2017Q4

REPORT INFORMATION
  Report Type: Spontaneous
  Country: US (occurrence: US)
  Receive Date: 20160106
  Receipt Date: 20171114
  Transmission Date: 20180320
  Serious: Yes (Congenital Anomaly, Other)
  Sender: FDA-Public Use
  Company Number: PHEH2015US027578

PATIENT
  Sex: Male

DRUGS (2)
  1. ZOFRAN [Suspect]
     Active Substance: ONDANSETRON HYDROCHLORIDE
     Indication: FOETAL EXPOSURE DURING PREGNANCY
     Dosage: MOTHER^S DOSE: 8 MG, UNK
     Route: 064
  2. ONDANSETRON [Suspect]
     Active Substance: ONDANSETRON
     Indication: FOETAL EXPOSURE DURING PREGNANCY
     Dosage: MOTHER^S DOSE: 8 MG, UNK
     Route: 064

REACTIONS (25)
  - Heart disease congenital [Unknown]
  - Pulmonary artery stenosis congenital [Unknown]
  - Left ventricular dilatation [Unknown]
  - Right ventricular hypertension [Unknown]
  - Anhedonia [Unknown]
  - Plagiocephaly [Unknown]
  - Jaundice neonatal [Recovered/Resolved]
  - Tricuspid valve incompetence [Unknown]
  - Pain [Unknown]
  - Pulmonary oedema neonatal [Unknown]
  - Emotional distress [Unknown]
  - Atrial septal defect [Unknown]
  - Ventricular septal defect [Unknown]
  - Premature baby [Unknown]
  - Foetal exposure during pregnancy [Unknown]
  - Left ventricular hypertrophy [Unknown]
  - Cardiac murmur [Unknown]
  - Patent ductus arteriosus [Recovered/Resolved]
  - Neonatal respiratory distress syndrome [Unknown]
  - Injury [Unknown]
  - Fallot^s tetralogy [Recovering/Resolving]
  - Cardiomegaly [Unknown]
  - Anxiety [Unknown]
  - Congenital anomaly [Unknown]
  - Left atrial dilatation [Unknown]

NARRATIVE: CASE EVENT DATE: 20091231
